FAERS Safety Report 9006122 (Version 1)
Quarter: 2013Q1

REPORT INFORMATION
  Report Type: Spontaneous
  Country: US (occurrence: US)
  Receive Date: 20130109
  Receipt Date: 20130109
  Transmission Date: 20140127
  Serious: Yes (Other)
  Sender: FDA-Public Use
  Company Number: US-009507513-0902USA00709

PATIENT
  Age: 52 Year
  Sex: Female
  Weight: 109.77 kg

DRUGS (2)
  1. SINGULAIR [Suspect]
     Indication: RHINITIS ALLERGIC
     Dosage: 10 MG, QPM
     Route: 048
     Dates: start: 20070927, end: 20080709
  2. SINGULAIR [Suspect]
     Indication: ASTHMA

REACTIONS (1)
  - Angioedema [Unknown]
